FAERS Safety Report 6445088-1 (Version None)
Quarter: 2009Q4

REPORT INFORMATION
  Report Type: 
  Country: None (occurrence: None)
  Receive Date: 20091118
  Receipt Date: 20091111
  Transmission Date: 20100525
  Serious: Yes (Hospitalization)
  Sender: FDA-Public Use
  Company Number: JP-BRISTOL-MYERS SQUIBB COMPANY-14807192

PATIENT
  Age: 69 Year
  Sex: Female
  Weight: 74 kg

DRUGS (3)
  1. ERBITUX [Suspect]
     Indication: COLON CANCER
     Dosage: 670 MG ON 24JUN09;RECENT INFUSION ON 15JUL09
     Route: 042
     Dates: start: 20090624, end: 20090715
  2. CHLORPHENIRAMINE MALEATE [Concomitant]
     Indication: PREMEDICATION
     Route: 042
     Dates: start: 20090624
  3. DEXAMETHASONE SODIUM PHOSPHATE [Concomitant]
     Indication: PREMEDICATION
     Route: 042
     Dates: start: 20090624

REACTIONS (1)
  - SKIN ULCER [None]
